FAERS Safety Report 25843449 (Version 2)
Quarter: 2025Q4

REPORT INFORMATION
  Report Type: Spontaneous
  Country: US (occurrence: US)
  Receive Date: 20250924
  Receipt Date: 20251022
  Transmission Date: 20260118
  Serious: No
  Sender: SANOFI AVENTIS
  Company Number: US-SA-2025SA284079

PATIENT
  Age: 48 Year
  Sex: Female

DRUGS (2)
  1. DUPIXENT [Suspect]
     Active Substance: DUPILUMAB
     Indication: Asthma
     Dosage: 600 MG, 1X
     Route: 058
     Dates: start: 20240324, end: 20240324
  2. DUPIXENT [Suspect]
     Active Substance: DUPILUMAB
     Dosage: 300 MG, QOW
     Route: 058
     Dates: start: 2024

REACTIONS (5)
  - Respiratory tract infection [Recovered/Resolved]
  - Productive cough [Recovered/Resolved]
  - Oropharyngeal pain [Recovered/Resolved]
  - Chest discomfort [Recovered/Resolved]
  - Asthma [Unknown]

NARRATIVE: CASE EVENT DATE: 20250101
